FAERS Safety Report 5622526-5 (Version None)
Quarter: 2008Q1

REPORT INFORMATION
  Report Type: 
  Country: None (occurrence: None)
  Receive Date: 20080211
  Receipt Date: 20080130
  Transmission Date: 20080703
  Serious: Yes (Death)
  Sender: FDA-Public Use
  Company Number: ES-PFIZER INC-2008012323

PATIENT
  Age: 92 Year
  Sex: Female

DRUGS (6)
  1. ATARAX [Suspect]
     Indication: PRURITUS
     Route: 048
     Dates: start: 20071007, end: 20071023
  2. FUROSEMIDE [Concomitant]
     Indication: CARDIAC FAILURE
     Route: 048
  3. PROPRANOLOL [Concomitant]
     Indication: CARDIAC FAILURE
     Dosage: DAILY DOSE:20MG
     Route: 048
  4. LANSOPRAZOLE [Concomitant]
     Dosage: DAILY DOSE:15MG
     Route: 048
  5. ENALAPRIL MALEATE [Concomitant]
     Indication: CARDIAC FAILURE
     Dosage: DAILY DOSE:5MG
     Route: 048
  6. ISOSORBIDE MONONITRATE [Concomitant]
     Indication: CARDIAC FAILURE
     Dosage: DAILY DOSE:50MG
     Route: 048

REACTIONS (1)
  - MYOCLONUS [None]
